FAERS Safety Report 9594289 (Version 2)
Quarter: 2013Q4

REPORT INFORMATION
  Report Type: Spontaneous
  Country: US (occurrence: US)
  Receive Date: 20131004
  Receipt Date: 20131004
  Transmission Date: 20140711
  Serious: No
  Sender: FDA-Public Use
  Company Number: US-PURDUE-USA-2012-0090044

PATIENT
  Age: 54 Year
  Sex: Male
  Weight: 97.51 kg

DRUGS (3)
  1. BUTRANS [Suspect]
     Indication: NEUROPATHY PERIPHERAL
     Dosage: 20 MCG, 1/WEEK
     Route: 062
     Dates: start: 201205
  2. HYDROCODONE [Concomitant]
     Indication: PRODUCT USED FOR UNKNOWN INDICATION
     Dosage: UNK UNK, UNK
     Route: 065
  3. XANAX [Concomitant]
     Indication: PRODUCT USED FOR UNKNOWN INDICATION
     Dosage: 1 MG, UNK
     Route: 065

REACTIONS (8)
  - Application site discolouration [Not Recovered/Not Resolved]
  - Product adhesion issue [Unknown]
  - Hyperhidrosis [Unknown]
  - Application site irritation [Not Recovered/Not Resolved]
  - Application site pruritus [Not Recovered/Not Resolved]
  - Application site erosion [Not Recovered/Not Resolved]
  - Application site exfoliation [Not Recovered/Not Resolved]
  - Application site odour [Unknown]
